FAERS Safety Report 9612438 (Version 1)
Quarter: 2013Q4

REPORT INFORMATION
  Report Type: Spontaneous
  Country: US (occurrence: None)
  Receive Date: 20131008
  Receipt Date: 20131008
  Transmission Date: 20140711
  Serious: Yes (Hospitalization)
  Sender: FDA-Public Use
  Company Number: UTC-038544

PATIENT
  Age: 43 Year
  Sex: Female

DRUGS (2)
  1. REMODULIN [Suspect]
     Indication: PRODUCT USED FOR UNKNOWN INDICATION
  2. LETAIRIS (AMBRISENTAN) (TABLET) (AMBRISENTAN) [Suspect]
     Indication: PULMONARY HYPERTENSION
     Dosage: 10 MG (10 MG, 1 IN 1 D)
     Dates: start: 20130601

REACTIONS (3)
  - Dyspnoea [None]
  - Myalgia [None]
  - Feeling abnormal [None]
